FAERS Safety Report 14304486 (Version 1)
Quarter: 2017Q4

REPORT INFORMATION
  Report Type: Spontaneous
  Country: JP (occurrence: JP)
  Receive Date: 20171219
  Receipt Date: 20171219
  Transmission Date: 20180321
  Serious: Yes (Hospitalization, Other)
  Sender: FDA-Public Use
  Company Number: JP-OTSUKA-03100-JPN-06-0055

PATIENT
  Age: 64 Year
  Sex: Male
  Weight: 54 kg

DRUGS (13)
  1. PROMETHAZINE HCL [Concomitant]
     Active Substance: PROMETHAZINE HYDROCHLORIDE
     Dosage: 25 MG, UNK
     Dates: start: 20060619
  2. IMPROMEN [Suspect]
     Active Substance: BROMPERIDOL
     Route: 048
     Dates: start: 20060627
  3. CONTOMIN [Concomitant]
     Active Substance: CHLORPROMAZINE
     Route: 048
     Dates: start: 20060619, end: 20060626
  4. PYRETHIA [Concomitant]
     Active Substance: PROMETHAZINE HYDROCHLORIDE
     Dosage: 25 MG, QD
     Route: 048
     Dates: start: 20060619
  5. AKINETON [Concomitant]
     Active Substance: BIPERIDEN HYDROCHLORIDE
     Dosage: 1 MG, TID
     Route: 048
     Dates: start: 20060619
  6. IMPROMEN [Suspect]
     Active Substance: BROMPERIDOL
     Route: 048
     Dates: end: 20060618
  7. CONTOMIN [Concomitant]
     Active Substance: CHLORPROMAZINE
     Route: 048
     Dates: start: 20060627
  8. ARTANE [Concomitant]
     Active Substance: TRIHEXYPHENIDYL HYDROCHLORIDE
     Dosage: 2 MG, QD
     Route: 048
     Dates: start: 20060619, end: 20060626
  9. IMPROMEN [Suspect]
     Active Substance: BROMPERIDOL
     Dosage: 1 MG, TID
     Route: 048
     Dates: start: 20060619, end: 20060626
  10. CONTOMIN [Concomitant]
     Active Substance: CHLORPROMAZINE
     Route: 048
     Dates: end: 20060618
  11. EURODIN [Concomitant]
     Dosage: 2 MG, QD
     Route: 048
     Dates: start: 20060619
  12. ABILIFY [Suspect]
     Active Substance: ARIPIPRAZOLE
     Dosage: 6 MG, QD
     Route: 048
     Dates: start: 20060619, end: 20060626
  13. BROMPERIDOL [Suspect]
     Active Substance: BROMPERIDOL
     Indication: HALLUCINATION
     Dosage: 1 DOSAGE FORM = 9 MG/ 3 MG /12 MG
     Route: 048

REACTIONS (2)
  - Confusional state [Recovered/Resolved]
  - Insomnia [Recovering/Resolving]

NARRATIVE: CASE EVENT DATE: 20060622
